FAERS Safety Report 19569384 (Version 2)
Quarter: 2021Q3

REPORT INFORMATION
  Report Type: Spontaneous
  Country: ZA (occurrence: ZA)
  Receive Date: 20210715
  Receipt Date: 20210825
  Transmission Date: 20211014
  Serious: Yes (Other)
  Sender: FDA-Public Use
  Company Number: ZA-GLAXOSMITHKLINE-ZACH2021045463

PATIENT
  Sex: Male

DRUGS (2)
  1. GRANDPA [Suspect]
     Active Substance: ACETAMINOPHEN\ASPIRIN\CAFFEINE
     Indication: INFLUENZA
     Dosage: UNK
  2. GRANDPA [Suspect]
     Active Substance: ACETAMINOPHEN\ASPIRIN\CAFFEINE
     Indication: PAIN

REACTIONS (3)
  - Product use in unapproved indication [Unknown]
  - Drug dependence [Unknown]
  - Drug effective for unapproved indication [Unknown]
